FAERS Safety Report 21135874 (Version 1)
Quarter: 2022Q3

REPORT INFORMATION
  Report Type: Spontaneous
  Country: US (occurrence: US)
  Receive Date: 20220727
  Receipt Date: 20220727
  Transmission Date: 20221026
  Serious: Yes (Hospitalization)
  Sender: FDA-Public Use
  Company Number: US-SPECGX-T202201639

PATIENT
  Age: 44 Year
  Sex: Female

DRUGS (1)
  1. FENTANYL CITRATE [Suspect]
     Active Substance: FENTANYL CITRATE
     Indication: Product used for unknown indication
     Dosage: UNK
     Route: 065

REACTIONS (7)
  - Leukoencephalopathy [Unknown]
  - Septic shock [Unknown]
  - Staphylococcal bacteraemia [Unknown]
  - Arthritis bacterial [Unknown]
  - Brain injury [Unknown]
  - Anterograde amnesia [Unknown]
  - Overdose [Unknown]
